FAERS Safety Report 5871570-1 (Version None)
Quarter: 2008Q3

REPORT INFORMATION
  Report Type: 
  Country: None (occurrence: None)
  Receive Date: 20080905
  Receipt Date: 20080514
  Transmission Date: 20090109
  Serious: Yes (Disabling)
  Sender: FDA-Public Use
  Company Number: A0727914A

PATIENT
  Age: 57 Year
  Sex: Female

DRUGS (3)
  1. REQUIP [Suspect]
     Indication: RESTLESS LEGS SYNDROME
     Dosage: 1TAB AT NIGHT
     Route: 048
     Dates: start: 20080501
  2. LORAZEPAM [Concomitant]
  3. VENLAFAXINE HCL [Concomitant]

REACTIONS (1)
  - DRUG INEFFECTIVE [None]
